FAERS Safety Report 6390040-8 (Version None)
Quarter: 2009Q4

REPORT INFORMATION
  Report Type: 
  Country: None (occurrence: None)
  Receive Date: 20091006
  Receipt Date: 20090929
  Transmission Date: 20100525
  Serious: Yes (Death)
  Sender: FDA-Public Use
  Company Number: US-GILEAD-2009-0024305

PATIENT
  Sex: Male
  Weight: 81.72 kg

DRUGS (17)
  1. LETAIRIS [Suspect]
     Indication: PULMONARY ARTERIAL HYPERTENSION
     Route: 048
  2. LETAIRIS [Suspect]
     Route: 048
     Dates: start: 20090624
  3. GABAPENTIN [Concomitant]
  4. PROTONIX [Concomitant]
  5. METOCLOPRAMIDE [Concomitant]
  6. RENVELA [Concomitant]
  7. OXYGEN [Concomitant]
  8. IRON DEXTRAN [Concomitant]
  9. FENTANYL-100 [Concomitant]
  10. LEXAPRO [Concomitant]
  11. TUMS [Concomitant]
  12. HYDROCODONE BITARTRATE AND ACETAMINOPHEN [Concomitant]
  13. ZITHROMAX [Concomitant]
  14. SENSIPAR [Concomitant]
  15. LANTUS [Concomitant]
  16. NOVOLOG [Concomitant]
  17. MIRAPEX [Concomitant]

REACTIONS (3)
  - BRONCHIAL SECRETION RETENTION [None]
  - DYSPNOEA [None]
  - RESPIRATORY ARREST [None]
